FAERS Safety Report 9275957 (Version 2)
Quarter: 2013Q2

REPORT INFORMATION
  Report Type: Spontaneous
  Country: US (occurrence: US)
  Receive Date: 20130507
  Receipt Date: 20130523
  Transmission Date: 20140414
  Serious: No
  Sender: FDA-Public Use
  Company Number: US-PFIZER INC-2013136882

PATIENT
  Age: 30 Year
  Sex: Female

DRUGS (9)
  1. XELJANZ [Suspect]
     Indication: RHEUMATOID ARTHRITIS
     Dosage: 5 MG, 2X/DAY
     Route: 048
     Dates: start: 20130122
  2. METHOTREXATE [Concomitant]
     Dosage: 200/8ML
  3. PREDNISONE [Concomitant]
     Dosage: 20 MG, UNK
  4. NEXIUM [Concomitant]
     Dosage: 40 MG, UNK
  5. LEUCOVORIN [Concomitant]
     Dosage: UNK
  6. PROCHLORPERAZINE [Concomitant]
     Dosage: 10 MG, UNK
  7. ZYRTEC [Concomitant]
     Dosage: 5 MG, UNK
  8. JUNEL FE [Concomitant]
     Dosage: 1.5/30
  9. CALCIUM [Concomitant]
     Dosage: 500 MG, UNK

REACTIONS (2)
  - Nausea [Recovered/Resolved]
  - Vomiting [Unknown]
